FAERS Safety Report 11205674 (Version 3)
Quarter: 2015Q3

REPORT INFORMATION
  Report Type: Spontaneous
  Country: GB (occurrence: GB)
  Receive Date: 20150622
  Receipt Date: 20150701
  Transmission Date: 20151125
  Serious: Yes (Other)
  Sender: FDA-Public Use
  Company Number: GB-PFIZER INC-2015202627

PATIENT
  Age: 77 Year
  Sex: Male
  Weight: 80 kg

DRUGS (12)
  1. SUKKARTO [Interacting]
     Active Substance: METFORMIN HYDROCHLORIDE
     Dosage: UNK
  2. CLOPIDOGREL [Concomitant]
     Active Substance: CLOPIDOGREL BISULFATE
     Dosage: UNK
     Dates: end: 20150528
  3. DOXAZOSIN MESILATE [Suspect]
     Active Substance: DOXAZOSIN MESYLATE
     Dosage: UNK
  4. LANSOPRAZOLE. [Interacting]
     Active Substance: LANSOPRAZOLE
     Dosage: UNK
  5. LOPERAMIDE [Interacting]
     Active Substance: LOPERAMIDE
     Dosage: UNK
  6. BENDROFLUAZIDE [Interacting]
     Active Substance: BENDROFLUMETHIAZIDE
     Dosage: UNK
  7. CANAGLIFLOZIN [Interacting]
     Active Substance: CANAGLIFLOZIN
     Indication: TYPE 2 DIABETES MELLITUS
     Dosage: 100 MG, UNK
     Route: 048
     Dates: start: 20150508, end: 20150604
  8. SIMVASTATIN. [Interacting]
     Active Substance: SIMVASTATIN
     Dosage: UNK
  9. FINASTERIDE. [Interacting]
     Active Substance: FINASTERIDE
     Dosage: UNK
  10. LOSARTAN. [Interacting]
     Active Substance: LOSARTAN
     Dosage: UNK
  11. ATENOLOL. [Interacting]
     Active Substance: ATENOLOL
     Dosage: UNK
  12. ELIQUIS [Interacting]
     Active Substance: APIXABAN
     Dosage: UNK

REACTIONS (7)
  - Diabetes mellitus inadequate control [Not Recovered/Not Resolved]
  - Muscle spasms [Not Recovered/Not Resolved]
  - Drug interaction [Unknown]
  - Fasciitis [Not Recovered/Not Resolved]
  - Confusional state [Not Recovered/Not Resolved]
  - Amnesia [Not Recovered/Not Resolved]
  - Blood glucose increased [Not Recovered/Not Resolved]

NARRATIVE: CASE EVENT DATE: 20150521
